FAERS Safety Report 6791047-9 (Version None)
Quarter: 2010Q2

REPORT INFORMATION
  Report Type: 
  Country: None (occurrence: None)
  Receive Date: 20100624
  Receipt Date: 20100618
  Transmission Date: 20101027
  Serious: Yes (Hospitalization)
  Sender: FDA-Public Use
  Company Number: FR-BRISTOL-MYERS SQUIBB COMPANY-15158389

PATIENT
  Age: 64 Year
  Sex: Male

DRUGS (6)
  1. COUMADIN [Suspect]
     Route: 048
     Dates: start: 20100505, end: 20100101
  2. NEXEN [Suspect]
     Route: 048
     Dates: start: 20100505
  3. CARDENSIEL [Concomitant]
  4. FLECAINIDE ACETATE [Concomitant]
  5. TAREG [Concomitant]
  6. ALLOPURINOL [Concomitant]

REACTIONS (3)
  - MELAENA [None]
  - NAUSEA [None]
  - VERTIGO [None]
